FAERS Safety Report 18020356 (Version 1)
Quarter: 2020Q3

REPORT INFORMATION
  Report Type: Spontaneous
  Country: FR (occurrence: FR)
  Receive Date: 20200714
  Receipt Date: 20200714
  Transmission Date: 20201103
  Serious: Yes (Other)
  Sender: FDA-Public Use
  Company Number: FR-PFIZER INC-2020265472

PATIENT
  Age: 66 Year
  Sex: Female
  Weight: 57 kg

DRUGS (7)
  1. METOCLOPRAMIDE. [Concomitant]
     Active Substance: METOCLOPRAMIDE
     Indication: VOMITING
     Dosage: UNK (10 MG IF NAUSEA, UP TO 30 MG / D)
     Route: 048
     Dates: start: 20191018, end: 20200402
  2. APREPITANT. [Concomitant]
     Active Substance: APREPITANT
     Indication: VOMITING
     Dosage: UNK (125 MG D1 AND 80 MG D2?D3 POST?CHEMO)
     Route: 048
     Dates: start: 20191018, end: 20200402
  3. LOPERAMIDE HCL [Concomitant]
     Active Substance: LOPERAMIDE HYDROCHLORIDE
     Indication: DIARRHOEA
     Dosage: UNK (2 MG IF DIARRHEA, MAX 8 PER DAY)
     Route: 048
     Dates: start: 20191018, end: 20200402
  4. FLUOROURACIL. [Suspect]
     Active Substance: FLUOROURACIL
     Indication: COLORECTAL ADENOCARCINOMA
     Dosage: 2800 MG/M2 (48 HOUR CASSETTE)
     Route: 042
     Dates: start: 20191018, end: 20200331
  5. OXALIPLATIN. [Suspect]
     Active Substance: OXALIPLATIN
     Indication: COLORECTAL ADENOCARCINOMA
     Dosage: 85 MG/M2
     Route: 042
     Dates: start: 20191018, end: 20200204
  6. PREDNISOLONE. [Concomitant]
     Active Substance: PREDNISOLONE
     Indication: VOMITING
     Dosage: UNK (40 MG D2 AND D3 POST?CHEMO)
     Route: 048
     Dates: start: 20191018, end: 20200402
  7. SODIUM BICARBONATE. [Concomitant]
     Active Substance: SODIUM BICARBONATE
     Indication: STOMATITIS
     Dosage: UNK (BDB AFTER MEALS)
     Route: 002
     Dates: start: 20191018, end: 20200402

REACTIONS (3)
  - Neuropathy peripheral [Unknown]
  - Interstitial lung disease [Recovered/Resolved]
  - Agranulocytosis [Recovered/Resolved]

NARRATIVE: CASE EVENT DATE: 20200113
